FAERS Safety Report 6678014-0 (Version None)
Quarter: 2010Q2

REPORT INFORMATION
  Report Type: 
  Country: None (occurrence: None)
  Receive Date: 20100412
  Receipt Date: 20100311
  Transmission Date: 20101027
  Serious: No
  Sender: FDA-Public Use
  Company Number: US-BAYER-201019229GPV

PATIENT
  Sex: Female

DRUGS (8)
  1. NAPROSYN [Suspect]
     Indication: RHEUMATOID ARTHRITIS
     Dosage: TOTAL DAILY DOSE: 1000 MG
     Route: 048
     Dates: start: 20070501
  2. ORTHO-NOVUM [Concomitant]
     Route: 065
     Dates: start: 20090109, end: 20091201
  3. AZULFIDINE [Concomitant]
     Dates: start: 20070501, end: 20100218
  4. FERROUS GLUCONATE [Concomitant]
     Route: 065
     Dates: start: 20070822, end: 20100304
  5. METOPROLOL TARTRATE [Concomitant]
     Dates: start: 20080211
  6. DEXTROPROPOXYPHENE [Concomitant]
  7. LEVOTHYROXINE SODIUM [Concomitant]
     Indication: HYPOTHYROIDISM
     Dosage: TOTAL DAILY DOSE: 100 ?G
     Route: 048
     Dates: start: 20060124
  8. PROPOXYPHENE HCL [Concomitant]
     Route: 065
     Dates: start: 20090424, end: 20100304

REACTIONS (1)
  - NO ADVERSE EVENT [None]
